FAERS Safety Report 8181575 (Version 5)
Quarter: 2018Q4

REPORT INFORMATION
  Report Type: Spontaneous
  Country: DE (occurrence: DE)
  Receive Date: 20111014
  Receipt Date: 20181023
  Transmission Date: 20190205
  Serious: Yes (Hospitalization, Other)
  Sender: FDA-Public Use
  Company Number: DE-PFIZER INC-2011243797

PATIENT
  Age: 24 Year
  Sex: Female
  Weight: 68 kg

DRUGS (26)
  1. QUENSYL [Suspect]
     Active Substance: HYDROXYCHLOROQUINE
     Indication: NEPHROTIC SYNDROME
     Dosage: 200 MG, DAILY (EVERY DAYS)
     Route: 048
     Dates: start: 20111214
  2. ALBUTEROL [SALBUTAMOL] [Concomitant]
     Active Substance: ALBUTEROL
     Indication: ASTHMA
     Dosage: UNK
  3. FALITHROM [Suspect]
     Active Substance: PHENPROCOUMON
     Indication: PULMONARY EMBOLISM
     Dosage: 3 MG, 2X/DAY
     Route: 048
     Dates: start: 20091031, end: 20110113
  4. RASILEZ [Concomitant]
     Active Substance: ALISKIREN
     Indication: HYPERTENSION
     Dosage: UNK
     Dates: start: 20111214, end: 20120117
  5. SALBUTAMOL [Concomitant]
     Active Substance: ALBUTEROL
     Indication: ASTHMA
     Dosage: UNK
  6. TOREM (TORASEMIDE) [Suspect]
     Active Substance: TORSEMIDE
     Indication: NEPHROTIC SYNDROME
     Dosage: 100 MG, UNK
     Route: 065
     Dates: start: 20101031
  7. PREDNISOLONE. [Concomitant]
     Active Substance: PREDNISOLONE
     Dosage: UNK
     Route: 048
     Dates: start: 20111214, end: 20120320
  8. CYCLOPHOSPHAMID [Concomitant]
     Active Substance: CYCLOPHOSPHAMIDE
     Indication: SYSTEMIC LUPUS ERYTHEMATOSUS
     Dosage: UNK
     Dates: start: 201104, end: 201108
  9. DELIX (RAMIPRIL) [Suspect]
     Active Substance: RAMIPRIL
     Indication: NEPHROTIC SYNDROME
     Dosage: UNK
     Route: 048
     Dates: start: 20101031
  10. RITUXIMAB. [Suspect]
     Active Substance: RITUXIMAB
     Indication: SYSTEMIC LUPUS ERYTHEMATOSUS
     Dosage: LAST TIME IN DECEMBER 2011: PRE OR PERICONCEPTIONAL
     Route: 058
  11. CYTOTEC [Concomitant]
     Active Substance: MISOPROSTOL
     Indication: ABORTION INDUCED
     Dosage: UNK
     Dates: start: 20120320, end: 20120320
  12. ALISKIREN [Concomitant]
     Active Substance: ALISKIREN
     Indication: HYPERTENSION
     Dosage: UNK
     Dates: start: 20111214, end: 20120117
  13. QUENSYL [Suspect]
     Active Substance: HYDROXYCHLOROQUINE
     Indication: SYSTEMIC LUPUS ERYTHEMATOSUS
  14. INEGY [Suspect]
     Active Substance: EZETIMIBE\SIMVASTATIN
     Indication: HYPERCHOLESTEROLAEMIA
     Dosage: UNK40 [MG/D ] / 10 [MG/D]
     Route: 048
     Dates: start: 20111214
  15. TACROLIMUS. [Suspect]
     Active Substance: TACROLIMUS
     Indication: SYSTEMIC LUPUS ERYTHEMATOSUS
     Dosage: 6 MG, UNK
     Route: 048
     Dates: end: 20120320
  16. ADVAGRAF [Suspect]
     Active Substance: TACROLIMUS
     Indication: SYSTEMIC LUPUS ERYTHEMATOSUS
     Dosage: 6 MG, UNK 6 [MG/D ]
     Route: 048
     Dates: start: 20111214
  17. CLEXANE [Concomitant]
     Active Substance: ENOXAPARIN SODIUM
     Indication: PULMONARY EMBOLISM
     Dosage: UNK
     Route: 048
     Dates: start: 20111214, end: 20120320
  18. NOVAMINSULFON [Concomitant]
     Active Substance: METAMIZOLE
     Indication: PAIN
     Dosage: UNK
  19. MIFEGYNE [Concomitant]
     Active Substance: MIFEPRISTONE
     Indication: ABORTION INDUCED
  20. CYCLOSPORINE A [Suspect]
     Active Substance: CYCLOSPORINE
     Indication: GLOMERULONEPHRITIS MEMBRANOUS
     Dosage: 150 MG, 2X/DAY
     Route: 048
     Dates: start: 20091031, end: 20110131
  21. CLEXANE [Concomitant]
     Active Substance: ENOXAPARIN SODIUM
     Indication: DEEP VEIN THROMBOSIS
     Dosage: 60 MG AND 80 MG DAILY (140 MG/DAY)
     Route: 048
     Dates: start: 20110114, end: 20110131
  22. PANTOZOL [Concomitant]
     Active Substance: PANTOPRAZOLE SODIUM
     Indication: GASTRITIS PROPHYLAXIS
     Dosage: UNK
     Dates: start: 20111214, end: 20120320
  23. XARELTO [Concomitant]
     Active Substance: RIVAROXABAN
     Indication: VENA CAVA THROMBOSIS
     Dosage: 10 MG, UNK
  24. PREDNISOLONE. [Concomitant]
     Active Substance: PREDNISOLONE
     Indication: SYSTEMIC LUPUS ERYTHEMATOSUS
     Dosage: 7.5 MG/DAY
     Route: 048
     Dates: start: 20091031, end: 20110131
  25. MIFEGYNE [Concomitant]
     Active Substance: MIFEPRISTONE
     Indication: VENA CAVA THROMBOSIS
     Dosage: UNK
     Dates: start: 20120320, end: 20120320
  26. ASPIRIN. [Concomitant]
     Active Substance: ASPIRIN
     Indication: VENA CAVA THROMBOSIS
     Dosage: UNK
     Dates: start: 20111214, end: 20120320

REACTIONS (5)
  - Deep vein thrombosis [Unknown]
  - Pulmonary embolism [Unknown]
  - Maternal exposure before pregnancy [None]
  - Maternal drugs affecting foetus [None]
  - Abortion induced [None]

NARRATIVE: CASE EVENT DATE: 20110113
